FAERS Safety Report 8785623 (Version 4)
Quarter: 2013Q4

REPORT INFORMATION
  Report Type: Report from Study
  Country: JP (occurrence: JP)
  Receive Date: 20120914
  Receipt Date: 20131209
  Transmission Date: 20140711
  Serious: Yes (Hospitalization)
  Sender: FDA-Public Use
  Company Number: JP-VERTEX PHARMACEUTICAL INC.-2012-020941

PATIENT
  Age: 62 Year
  Sex: Male

DRUGS (7)
  1. VX-950 (TELAPREVIR) [Suspect]
     Indication: CHRONIC HEPATITIS C
     Dosage: 2250 MG, QD
     Route: 048
     Dates: start: 20120705, end: 20120816
  2. REBETOL [Suspect]
     Indication: CHRONIC HEPATITIS C
     Dosage: 1000 MG, QD
     Route: 048
     Dates: start: 20120705, end: 20120719
  3. REBETOL [Suspect]
     Dosage: 800 MG, QD
     Route: 048
     Dates: start: 20120720
  4. PEGINTERFERON ALFA-2B [Suspect]
     Indication: CHRONIC HEPATITIS C
     Dosage: 1.5 ?G/KG, QW
     Route: 058
     Dates: start: 20120705, end: 20120705
  5. PEGINTERFERON ALFA-2B [Suspect]
     Dosage: 60 ?G, QW
     Route: 058
     Dates: start: 20120712, end: 20120712
  6. PEGINTERFERON ALFA-2B [Suspect]
     Dosage: 100 ?G, QW
     Route: 058
     Dates: start: 20120719, end: 20120801
  7. PEGINTERFERON ALFA-2B [Suspect]
     Dosage: 60 ?G, QW
     Route: 058
     Dates: start: 20120808, end: 20120808

REACTIONS (2)
  - Decreased appetite [Recovered/Resolved]
  - Depression [Recovered/Resolved]
